FAERS Safety Report 9661289 (Version 1)
Quarter: 2013Q4

REPORT INFORMATION
  Report Type: Spontaneous
  Country: US (occurrence: US)
  Receive Date: 20131031
  Receipt Date: 20131031
  Transmission Date: 20140711
  Serious: Yes (Other)
  Sender: FDA-Public Use
  Company Number: US-MYLANLABS-2013S1024186

PATIENT
  Age: 34 Year
  Sex: Male

DRUGS (2)
  1. DOXAZOSIN [Suspect]
     Dosage: UNK
     Route: 048
  2. PROPRANOLOL [Suspect]
     Dosage: UNK
     Route: 048

REACTIONS (3)
  - Overdose [Recovered/Resolved]
  - Toxicity to various agents [Recovered/Resolved]
  - Circulatory collapse [Unknown]
